FAERS Safety Report 19800193 (Version 1)
Quarter: 2021Q3

REPORT INFORMATION
  Report Type: Report from Study
  Country: MX (occurrence: MX)
  Receive Date: 20210907
  Receipt Date: 20210907
  Transmission Date: 20211014
  Serious: Yes (Other)
  Sender: FDA-Public Use
  Company Number: MX-SEATTLE GENETICS-2020SGN04966

PATIENT
  Sex: Female

DRUGS (1)
  1. BRENTUXIMAB VEDOTIN [Suspect]
     Active Substance: BRENTUXIMAB VEDOTIN
     Indication: HODGKIN^S DISEASE
     Dosage: 50 MILLIGRAM
     Route: 042
     Dates: start: 20201013

REACTIONS (6)
  - Platelet count decreased [Unknown]
  - Device related infection [Unknown]
  - Product dose omission issue [Unknown]
  - Tachycardia [Recovering/Resolving]
  - Blood magnesium decreased [Unknown]
  - Haemoglobin decreased [Unknown]
